FAERS Safety Report 5145791-X (Version None)
Quarter: 2006Q4

REPORT INFORMATION
  Report Type: 
  Country: None (occurrence: None)
  Receive Date: 20061108
  Receipt Date: 20060417
  Transmission Date: 20070319
  Serious: Yes (Death)
  Sender: FDA-Public Use
  Company Number: US-SANOFI-SYNTHELABO-A03200602431

PATIENT
  Age: 79 Year
  Sex: Female
  Weight: 62.58 kg

DRUGS (6)
  1. ARICEPT [Concomitant]
     Dosage: UNK
     Route: 048
  2. ATENOLOL [Concomitant]
     Dosage: UNK
     Route: 048
  3. LISINOPRIL [Concomitant]
     Dosage: UNK
     Route: 048
  4. ASPIRIN [Concomitant]
     Route: 048
  5. KEPPRA [Concomitant]
     Dosage: UNK
     Route: 048
  6. PLAVIX [Suspect]
     Indication: CEREBROVASCULAR ACCIDENT
     Route: 048
     Dates: start: 20011201

REACTIONS (1)
  - DEATH [None]
